FAERS Safety Report 6097506-9 (Version None)
Quarter: 2009Q1

REPORT INFORMATION
  Report Type: 
  Country: None (occurrence: None)
  Receive Date: 20090227
  Receipt Date: 20080728
  Transmission Date: 20090719
  Serious: No
  Sender: FDA-Public Use
  Company Number: A0744552A

PATIENT
  Sex: Male

DRUGS (3)
  1. IMITREX [Suspect]
     Indication: HEADACHE
     Route: 065
  2. FROVA [Suspect]
     Indication: HEADACHE
     Route: 065
  3. NAPROSYN [Suspect]
     Indication: HEADACHE
     Route: 065

REACTIONS (2)
  - DRUG INEFFECTIVE [None]
  - HEADACHE [None]
